FAERS Safety Report 6890528-7 (Version None)
Quarter: 2010Q3

REPORT INFORMATION
  Report Type: 
  Country: None (occurrence: None)
  Receive Date: 20100731
  Receipt Date: 20081119
  Transmission Date: 20110219
  Serious: No
  Sender: FDA-Public Use
  Company Number: US-PFIZER INC-2008098514

PATIENT
  Sex: Male
  Weight: 82.1 kg

DRUGS (3)
  1. LIPITOR [Suspect]
     Indication: BLOOD CHOLESTEROL INCREASED
     Dates: start: 20080901
  2. ACETYLSALICYLIC ACID SRT [Concomitant]
  3. MULTIPLE VITAMINS [Concomitant]

REACTIONS (1)
  - DACRYOCANALICULITIS [None]
